FAERS Safety Report 15495174 (Version 1)
Quarter: 2018Q4

REPORT INFORMATION
  Report Type: Spontaneous
  Country: JP (occurrence: JP)
  Receive Date: 20181012
  Receipt Date: 20181012
  Transmission Date: 20190205
  Serious: Yes (Hospitalization, Other)
  Sender: FDA-Public Use
  Company Number: JP-ALLERGAN-1849062US

PATIENT
  Age: 77 Year
  Sex: Female
  Weight: 63 kg

DRUGS (12)
  1. MAGMITT [Suspect]
     Active Substance: MAGNESIUM OXIDE
     Indication: CONSTIPATION
     Dosage: 660 MG, QD
     Route: 048
     Dates: start: 20180223, end: 20180621
  2. NEXIUM [Suspect]
     Active Substance: ESOMEPRAZOLE MAGNESIUM
     Indication: GASTRIC ULCER
     Dosage: 10 MG, QD
     Route: 048
     Dates: end: 20180529
  3. ZOLPIDEM TARTRATE. [Concomitant]
     Active Substance: ZOLPIDEM TARTRATE
     Indication: INSOMNIA
     Dosage: UNK
     Route: 065
     Dates: end: 20180529
  4. URSODEOXYCHOLIC ACID UNK [Suspect]
     Active Substance: URSODIOL
     Indication: HEPATIC ENZYME INCREASED
     Dosage: UNK
     Route: 065
     Dates: start: 20180605
  5. URSODEOXYCHOLIC ACID UNK [Suspect]
     Active Substance: URSODIOL
     Dosage: UNK
     Route: 065
     Dates: start: 20180514, end: 20180517
  6. SODIUM PICOSULFATE [Suspect]
     Active Substance: SODIUM PICOSULFATE
     Indication: CONSTIPATION
     Dosage: UNK
     Route: 065
     Dates: start: 20180605
  7. NORVASC [Concomitant]
     Active Substance: AMLODIPINE BESYLATE
     Indication: HYPERTENSION
     Dosage: UNK
     Route: 065
     Dates: end: 20180529
  8. VESICARE [Concomitant]
     Active Substance: SOLIFENACIN SUCCINATE
     Indication: HYPERTONIC BLADDER
     Dosage: UNK
     Route: 065
     Dates: end: 20180529
  9. NEO-MINOPHAGEN C [Suspect]
     Active Substance: AMMONIUM GLYCYRRHIZATE
     Indication: PRODUCT USED FOR UNKNOWN INDICATION
     Dosage: UNK
     Route: 065
     Dates: start: 20180530
  10. TSUMURA RIKKUNSHITO EXTRACT [Concomitant]
     Indication: PRODUCT USED FOR UNKNOWN INDICATION
     Dosage: UNK
     Route: 065
     Dates: start: 20180212, end: 20180529
  11. URSODEOXYCHOLIC ACID UNK [Suspect]
     Active Substance: URSODIOL
     Dosage: UNK
     Route: 065
     Dates: start: 20180530
  12. PURSENNID [Suspect]
     Active Substance: SENNOSIDES A AND B
     Indication: CONSTIPATION
     Dosage: 24 MG, QD
     Route: 048
     Dates: end: 20180529

REACTIONS (6)
  - Nausea [Unknown]
  - Decreased appetite [Unknown]
  - Drug-induced liver injury [Recovering/Resolving]
  - Urticaria [Unknown]
  - Hepatic enzyme increased [Recovering/Resolving]
  - Jaundice [Unknown]

NARRATIVE: CASE EVENT DATE: 20180517
